FAERS Safety Report 14760967 (Version 1)
Quarter: 2018Q2

REPORT INFORMATION
  Report Type: Spontaneous
  Country: GB (occurrence: GB)
  Receive Date: 20180415
  Receipt Date: 20180415
  Transmission Date: 20180711
  Serious: Yes (Other)
  Sender: FDA-Public Use
  Company Number: GB-DEXPHARM-20180225

PATIENT
  Age: 63 Year
  Sex: Female
  Weight: 52.61 kg

DRUGS (3)
  1. OMEPRAZOLE. [Suspect]
     Active Substance: OMEPRAZOLE
     Indication: MYOCARDITIS
     Route: 048
     Dates: start: 20180315, end: 20180320
  2. NEFOPAM [Interacting]
     Active Substance: NEFOPAM
  3. ELLESTE-SOLO [Concomitant]

REACTIONS (4)
  - Dizziness [Recovered/Resolved with Sequelae]
  - Drug interaction [Recovered/Resolved with Sequelae]
  - Syncope [Recovered/Resolved with Sequelae]
  - Nausea [Recovered/Resolved with Sequelae]

NARRATIVE: CASE EVENT DATE: 20180317
